FAERS Safety Report 10792732 (Version 1)
Quarter: 2015Q1

REPORT INFORMATION
  Report Type: Report from Study
  Country: US (occurrence: None)
  Receive Date: 20150211
  Receipt Date: 20150211
  Transmission Date: 20150721
  Serious: Yes (Hospitalization)
  Sender: FDA-Public Use
  Company Number: AE15-005

PATIENT
  Age: 63 Year
  Sex: Female
  Weight: 87.54 kg

DRUGS (9)
  1. METHYLPREDNISOLONE. [Concomitant]
     Active Substance: METHYLPREDNISOLONE
  2. BUTALBITAL, CAFFEINE, PARACETAMOL (FIORICET) [Concomitant]
  3. ONDANSETRON HYDROCHLORIDE (ZOFRAN) [Concomitant]
  4. BUTALBITAL/APAP/CAFFEINE CAPSULES, USP 50/325/40MG [Suspect]
     Active Substance: ACETAMINOPHEN\BUTALBITAL\CAFFEINE
     Indication: MIGRAINE
     Dosage: 40MG, 4X/DAY, ORAL
     Route: 048
     Dates: start: 20140918, end: 20141003
  5. PALBOCICLIB OR PLACEBO (CAPSULE) [Concomitant]
  6. DIAZEPAM (VALIUM) [Concomitant]
  7. PROMETHAZINE HYDROCHLORIDE. [Concomitant]
     Active Substance: PROMETHAZINE HYDROCHLORIDE
  8. BUTALBITAL/APAP/CAFFEINE TABLETS, USP 50/325/40MG [Suspect]
     Active Substance: ACETAMINOPHEN\BUTALBITAL\CAFFEINE
     Indication: MIGRAINE
     Dosage: 40MG, 4X/DAY, ORAL
     Route: 048
     Dates: start: 20140918, end: 20141003
  9. FULVESTRANT (FASLODEX - SOLUTION) [Concomitant]

REACTIONS (3)
  - Chronic obstructive pulmonary disease [None]
  - Sedation [None]
  - Troponin increased [None]

NARRATIVE: CASE EVENT DATE: 20141003
